FAERS Safety Report 9819973 (Version 1)
Quarter: 2013Q1

REPORT INFORMATION
  Report Type: Spontaneous
  Country: US (occurrence: None)
  Receive Date: 20130107
  Receipt Date: 20130107
  Transmission Date: 20140127
  Serious: Yes (Other)
  Sender: FDA-Public Use
  Company Number: PHEH2012US018396

PATIENT
  Sex: Female
  Weight: 64.9 kg

DRUGS (11)
  1. GILENYA [Suspect]
     Route: 048
  2. VITAMIN D3 (COLECALCIFEROL) [Concomitant]
  3. BACLOFEN (BACLOFEN) [Concomitant]
  4. GABAPENTIN (GABAPENTIN) [Concomitant]
  5. TIZANIDINE (TIZANIDINE) [Concomitant]
  6. KLONOPIN (CLONAZEPAM) [Concomitant]
  7. LOSARTAN POTASSIUM (LOSARTAN POTASSIUM) [Concomitant]
  8. IBUPROFEN (IBUPROFEN) [Concomitant]
  9. COLESTIPOL (COLESTIPOL) [Concomitant]
  10. PRILOSEC [Concomitant]
  11. LISINOPRIL (LISINOPRIL) [Concomitant]

REACTIONS (1)
  - Fatigue [None]
